FAERS Safety Report 7783262-2 (Version None)
Quarter: 2011Q3

REPORT INFORMATION
  Report Type: 
  Country: None (occurrence: None)
  Receive Date: 20110928
  Receipt Date: 20110916
  Transmission Date: 20111222
  Serious: Yes (Other)
  Sender: FDA-Public Use
  Company Number: CA-JNJFOC-20110907582

PATIENT
  Sex: Male
  Weight: 70 kg

DRUGS (12)
  1. AZATHIOPRINE [Concomitant]
     Route: 065
  2. ZINC [Concomitant]
     Route: 065
  3. MESALAMINE [Concomitant]
     Route: 065
  4. NITRO-DUR [Concomitant]
     Route: 065
  5. CHOLESTYRAMINE [Concomitant]
     Route: 065
  6. ALL OTHER THERAPEUTIC PRODUCTS [Concomitant]
     Route: 065
  7. VITAMIN D [Concomitant]
     Route: 065
  8. CORTIFOAM [Concomitant]
     Route: 054
  9. CO-ETIDROCAL [Concomitant]
     Dosage: 400/500 MG AS DIRECTED
     Route: 065
  10. REMICADE [Suspect]
     Indication: COLITIS ULCERATIVE
     Dosage: DOSE STRENGTH 100MG/VIAL
     Route: 042
     Dates: start: 20090903
  11. AMLODIPINE [Concomitant]
     Route: 065
  12. NITROLINGUAL [Concomitant]
     Dosage: AS NEEDED
     Route: 065

REACTIONS (3)
  - PYREXIA [None]
  - DECREASED APPETITE [None]
  - MEMORY IMPAIRMENT [None]
